FAERS Safety Report 6752775-4 (Version None)
Quarter: 2010Q2

REPORT INFORMATION
  Report Type: 
  Country: None (occurrence: None)
  Receive Date: 20100602
  Receipt Date: 20100602
  Transmission Date: 20101027
  Serious: Yes (Hospitalization)
  Sender: FDA-Public Use
  Company Number: None

PATIENT
  Sex: Male
  Weight: 66.2 kg

DRUGS (7)
  1. TARCEVA [Suspect]
     Indication: NEOPLASM
     Dosage: 150 DAY 1 THROUGH 28 PO
     Route: 048
     Dates: start: 20100517, end: 20100531
  2. VIDAZA [Suspect]
     Indication: NEOPLASM
     Dosage: 190 MG DAY 104, DAY 15-18
     Dates: start: 20100517, end: 20100520
  3. FENTANYL-75 [Concomitant]
  4. PERCOCET [Concomitant]
  5. DIGOXIN [Concomitant]
  6. CARVEDILOL [Concomitant]
  7. LISINORIL [Concomitant]

REACTIONS (7)
  - ASTHENIA [None]
  - CHEST PAIN [None]
  - HAEMOGLOBIN DECREASED [None]
  - HYPOTENSION [None]
  - LEUKOPENIA [None]
  - NEUTROPENIA [None]
  - PRODUCTIVE COUGH [None]
